FAERS Safety Report 7472041-1 (Version None)
Quarter: 2011Q2

REPORT INFORMATION
  Report Type: 
  Country: None (occurrence: None)
  Receive Date: 20110511
  Receipt Date: 20101026
  Transmission Date: 20111010
  Serious: No
  Sender: FDA-Public Use
  Company Number: A0888785A

PATIENT
  Age: 72 Year
  Sex: Female

DRUGS (9)
  1. PRILOSEC [Concomitant]
  2. SYNTHROID [Concomitant]
  3. FOLIC ACID [Concomitant]
  4. TYKERB [Suspect]
     Dosage: 1000MG PER DAY
     Route: 048
     Dates: start: 20100918
  5. BENICAR [Concomitant]
  6. CELEXA [Concomitant]
  7. SENOKOT [Suspect]
  8. CARVEDILOL [Concomitant]
  9. ATIVAN [Concomitant]

REACTIONS (4)
  - DIARRHOEA [None]
  - EPISTAXIS [None]
  - CONSTIPATION [None]
  - FATIGUE [None]
